FAERS Safety Report 7761225-0 (Version None)
Quarter: 2011Q3

REPORT INFORMATION
  Report Type: 
  Country: None (occurrence: None)
  Receive Date: 20110920
  Receipt Date: 20110912
  Transmission Date: 20111222
  Serious: Yes (Life-Threatening)
  Sender: FDA-Public Use
  Company Number: JP-CELGENEUS-087-21660-11092011

PATIENT
  Sex: Female
  Weight: 53 kg

DRUGS (9)
  1. ABRAXANE [Suspect]
     Route: 041
     Dates: start: 20110701
  2. ABRAXANE [Suspect]
     Dosage: 300 MILLIGRAM
     Route: 041
     Dates: start: 20110218, end: 20110218
  3. ABRAXANE [Suspect]
     Dosage: 155 MILLIGRAM
     Route: 041
     Dates: start: 20110603
  4. ABRAXANE [Suspect]
     Dosage: 190 MILLIGRAM
     Route: 041
     Dates: start: 20110506
  5. ALOXI [Concomitant]
     Route: 041
     Dates: start: 20110218, end: 20110701
  6. DECADRON [Concomitant]
     Route: 041
     Dates: start: 20110218, end: 20110701
  7. FAMOTIDINE [Concomitant]
     Route: 041
     Dates: start: 20110218, end: 20110701
  8. ABRAXANE [Suspect]
     Indication: BREAST CANCER METASTATIC
     Dosage: 380 MILLIGRAM
     Route: 041
     Dates: start: 20110121, end: 20110121
  9. ABRAXANE [Suspect]
     Dosage: 240 MILLIGRAM
     Route: 041
     Dates: start: 20110318

REACTIONS (2)
  - NEUTROPHIL COUNT DECREASED [None]
  - WHITE BLOOD CELL COUNT DECREASED [None]
